FAERS Safety Report 9791623 (Version 2)
Quarter: 2014Q1

REPORT INFORMATION
  Report Type: Report from Study
  Country: US (occurrence: US)
  Receive Date: 20140102
  Receipt Date: 20140115
  Transmission Date: 20141002
  Serious: Yes (Hospitalization)
  Sender: FDA-Public Use
  Company Number: US-ROCHE-1327687

PATIENT
  Age: 67 Year
  Sex: Male

DRUGS (5)
  1. LUCENTIS [Suspect]
     Indication: RETINAL OEDEMA
     Route: 050
  2. LISINOPRIL [Concomitant]
     Indication: HYPERTENSION
  3. CLONIDINE [Concomitant]
     Indication: HYPERTENSION
  4. SIMVASTATIN [Concomitant]
     Indication: BLOOD CHOLESTEROL INCREASED
  5. HCTZ [Concomitant]

REACTIONS (4)
  - Fall [Unknown]
  - Balance disorder [Unknown]
  - Femur fracture [Unknown]
  - Visual acuity reduced [Unknown]
